FAERS Safety Report 21364137 (Version 2)
Quarter: 2022Q4

REPORT INFORMATION
  Report Type: Spontaneous
  Country: NL (occurrence: NL)
  Receive Date: 20220922
  Receipt Date: 20221007
  Transmission Date: 20230113
  Serious: Yes (Other)
  Sender: FDA-Public Use
  Company Number: NL-AMGEN-NLDSP2022160171

PATIENT

DRUGS (9)
  1. ADALIMUMAB [Suspect]
     Active Substance: ADALIMUMAB
     Indication: Rheumatoid arthritis
     Dosage: UNK
     Route: 065
  2. ADALIMUMAB [Suspect]
     Active Substance: ADALIMUMAB
     Indication: Axial spondyloarthritis
  3. ADALIMUMAB [Suspect]
     Active Substance: ADALIMUMAB
     Indication: Psoriatic arthropathy
  4. ADALIMUMAB [Suspect]
     Active Substance: ADALIMUMAB
     Indication: Ankylosing spondylitis
  5. ETANERCEPT [Concomitant]
     Active Substance: ETANERCEPT
     Indication: Rheumatoid arthritis
     Dosage: UNK
     Route: 065
  6. ETANERCEPT [Concomitant]
     Active Substance: ETANERCEPT
     Indication: Axial spondyloarthritis
  7. ETANERCEPT [Concomitant]
     Active Substance: ETANERCEPT
     Indication: Psoriatic arthropathy
  8. ETANERCEPT [Concomitant]
     Active Substance: ETANERCEPT
     Indication: Ankylosing spondylitis
  9. METHOTREXATE [Concomitant]
     Active Substance: METHOTREXATE
     Dosage: UNK

REACTIONS (39)
  - Rheumatoid arthritis [Unknown]
  - Pneumonia [Unknown]
  - Therapeutic product effect decreased [Unknown]
  - Rhinorrhoea [Unknown]
  - Infection susceptibility increased [Unknown]
  - Hot flush [Unknown]
  - Eye inflammation [Unknown]
  - Aphthous ulcer [Unknown]
  - Injection site rash [Unknown]
  - Injection site inflammation [Unknown]
  - Erythema [Unknown]
  - Diarrhoea [Unknown]
  - Injection site haematoma [Unknown]
  - Respiratory tract irritation [Unknown]
  - Fatigue [Unknown]
  - Dizziness [Unknown]
  - Arthralgia [Unknown]
  - Haematoma [Unknown]
  - Pain in extremity [Unknown]
  - Influenza like illness [Unknown]
  - Hyperhidrosis [Unknown]
  - Cystitis [Unknown]
  - Rash pruritic [Unknown]
  - Injection site pruritus [Unknown]
  - Injection site pain [Unknown]
  - Injection site irritation [Unknown]
  - Eczema [Unknown]
  - Cough [Unknown]
  - Sinusitis [Unknown]
  - Psoriasis [Unknown]
  - Respiratory tract infection [Unknown]
  - Nasopharyngitis [Unknown]
  - Herpes zoster [Unknown]
  - Pyrexia [Unknown]
  - Nausea [Unknown]
  - Injection site erythema [Unknown]
  - Headache [Unknown]
  - Dyspnoea [Unknown]
  - Alopecia [Unknown]
